FAERS Safety Report 9086465 (Version 1)
Quarter: 2013Q1

REPORT INFORMATION
  Report Type: Report from Study
  Country: US (occurrence: US)
  Receive Date: 20130131
  Receipt Date: 20130131
  Transmission Date: 20140127
  Serious: No
  Sender: FDA-Public Use
  Company Number: US-ABBOTT-12P-163-0997549-00

PATIENT
  Age: 51 Year
  Sex: Female

DRUGS (13)
  1. HUMIRA [Suspect]
     Indication: RHEUMATOID ARTHRITIS
     Route: 058
  2. METHOTREXATE [Concomitant]
     Indication: RHEUMATOID ARTHRITIS
  3. PREDNISONE [Concomitant]
     Indication: RHEUMATOID ARTHRITIS
     Dosage: 10 MG DAILY
     Route: 048
  4. FOLIC ACID [Concomitant]
     Indication: RHEUMATOID ARTHRITIS
     Dosage: 5 MG DAILY
     Route: 048
  5. TRAMADOL [Concomitant]
     Indication: RHEUMATOID ARTHRITIS
     Dosage: 2-3 TABS DAILY
     Route: 048
  6. PLAQUENIL [Concomitant]
     Indication: RHEUMATOID ARTHRITIS
     Dosage: DAILY
     Route: 048
  7. INSULIN [Concomitant]
     Indication: DIABETES MELLITUS
     Dosage: 10 U DAILY
     Route: 058
  8. METFORMIN [Concomitant]
     Indication: DIABETES MELLITUS
     Route: 048
  9. PRANDIN [Concomitant]
     Indication: DIABETES MELLITUS
     Route: 048
  10. UNKNOWN EYE DROPS [Concomitant]
     Indication: CATARACT
     Dosage: 3 DROPS IN EACH EYE DAILY
  11. GABAPENTIN [Concomitant]
     Indication: PRODUCT USED FOR UNKNOWN INDICATION
     Dosage: AT BEDTIME
     Route: 048
  12. CYCLOBENZAPRINE [Concomitant]
     Indication: BACK PAIN
     Dosage: 10 MG, HALF TAB AT BEDTIME
  13. CYCLOBENZAPRINE [Concomitant]
     Indication: NECK PAIN

REACTIONS (4)
  - Device malfunction [Unknown]
  - Eye pruritus [Not Recovered/Not Resolved]
  - Ocular hyperaemia [Not Recovered/Not Resolved]
  - Dry eye [Not Recovered/Not Resolved]
